FAERS Safety Report 10098686 (Version 1)
Quarter: 2014Q2

REPORT INFORMATION
  Report Type: Spontaneous
  Country: JP (occurrence: JP)
  Receive Date: 20140423
  Receipt Date: 20140423
  Transmission Date: 20141212
  Serious: Yes (Disabling)
  Sender: FDA-Public Use
  Company Number: JP-TEVA-477251ISR

PATIENT
  Sex: Female

DRUGS (1)
  1. FILGRASTIM BS INJ. [Suspect]

REACTIONS (1)
  - Eczema [Recovered/Resolved]
